FAERS Safety Report 26140080 (Version 1)
Quarter: 2025Q4

REPORT INFORMATION
  Report Type: Spontaneous
  Country: US (occurrence: None)
  Receive Date: 20251209
  Receipt Date: 20251209
  Transmission Date: 20260117
  Serious: Yes (Other)
  Sender: FDA-CTU
  Company Number: None

PATIENT
  Age: 64 Year
  Sex: Female

DRUGS (1)
  1. JAKAFI [Suspect]
     Active Substance: RUXOLITINIB
     Dosage: FREQUENCY : TWICE A DAY;
     Route: 048

REACTIONS (3)
  - Gastrointestinal disorder [None]
  - Constipation [None]
  - Splenomegaly [None]

NARRATIVE: CASE EVENT DATE: 20251209
